FAERS Safety Report 7924834 (Version 2)
Quarter: 2013Q2

REPORT INFORMATION
  Report Type: Report from Study
  Country: MX (occurrence: MX)
  Receive Date: 20110502
  Receipt Date: 20130530
  Transmission Date: 20140414
  Serious: Yes (Hospitalization)
  Sender: FDA-Public Use
  Company Number: PHHY2011MX34561

PATIENT
  Age: 50 Year
  Sex: Male

DRUGS (2)
  1. DIOVAN [Suspect]
     Indication: HYPERTENSION
     Dosage: 2 DF, (160 MG) DAILY
     Route: 048
     Dates: start: 201104
  2. CAPTOPRIL [Concomitant]
     Indication: BLOOD PRESSURE
     Dosage: UNK UKN, UNK

REACTIONS (2)
  - Umbilical hernia [Recovered/Resolved]
  - Blood glucose increased [Not Recovered/Not Resolved]
